FAERS Safety Report 8262594-8 (Version None)
Quarter: 2012Q1

REPORT INFORMATION
  Report Type: 
  Country: None (occurrence: None)
  Receive Date: 20120327
  Receipt Date: 20080826
  Transmission Date: 20120608
  Serious: Yes (Other)
  Sender: FDA-Public Use
  Company Number: PHEH2008US04612

PATIENT
  Age: 62 Year
  Sex: Male

DRUGS (1)
  1. GLEEVEC [Suspect]
     Indication: GASTROINTESTINAL STROMAL TUMOUR
     Dosage: 400 MG, BID, ORAL
     Route: 048

REACTIONS (7)
  - EXCORIATION [None]
  - ARTHRALGIA [None]
  - EXFOLIATIVE RASH [None]
  - RASH ERYTHEMATOUS [None]
  - RASH PAPULAR [None]
  - DIARRHOEA [None]
  - PRURITUS [None]
